FAERS Safety Report 20822751 (Version 2)
Quarter: 2022Q2

REPORT INFORMATION
  Report Type: Spontaneous
  Country: US (occurrence: US)
  Receive Date: 20220512
  Receipt Date: 20220523
  Transmission Date: 20220721
  Serious: No
  Sender: FDA-Public Use
  Company Number: US-PFIZER INC-202101872024

PATIENT
  Age: 72 Year

DRUGS (2)
  1. PREMARIN [Suspect]
     Active Substance: ESTROGENS, CONJUGATED
     Indication: Vulvovaginal dryness
     Dosage: UNK
  2. PREMARIN [Suspect]
     Active Substance: ESTROGENS, CONJUGATED
     Indication: Pain

REACTIONS (5)
  - Memory impairment [Unknown]
  - Attention deficit hyperactivity disorder [Unknown]
  - Expired product administered [Unknown]
  - Drug ineffective for unapproved indication [Unknown]
  - Off label use [Unknown]
